FAERS Safety Report 21762615 (Version 1)
Quarter: 2022Q4

REPORT INFORMATION
  Report Type: Spontaneous
  Country: FR (occurrence: FR)
  Receive Date: 20221221
  Receipt Date: 20221221
  Transmission Date: 20230113
  Serious: Yes (Death)
  Sender: FDA-Public Use
  Company Number: None

PATIENT
  Age: 74 Year
  Sex: Female
  Weight: 92 kg

DRUGS (6)
  1. CIPROFLOXACIN [Suspect]
     Active Substance: CIPROFLOXACIN
     Indication: Enterobacter infection
     Dosage: 750 MILLIGRAM, BID (1500 MG PER DAY)
     Route: 048
     Dates: start: 20220804, end: 20220913
  2. FLUCONAZOLE [Suspect]
     Active Substance: FLUCONAZOLE
     Indication: Mucocutaneous candidiasis
     Dosage: 200 MILLIGRAM, QD
     Route: 048
     Dates: start: 2022, end: 20220914
  3. FLUCONAZOLE [Suspect]
     Active Substance: FLUCONAZOLE
     Indication: Mucocutaneous candidiasis
     Dosage: 200 MILLIGRAM, QD (1 ADMINISTRATION PER DAY)
     Route: 042
     Dates: start: 20220915, end: 20220915
  4. FLUCONAZOLE [Suspect]
     Active Substance: FLUCONAZOLE
     Dosage: 100 MILLIGRAM, QD (1 ADMINISTRATION PER DAY)
     Route: 042
     Dates: start: 20220916, end: 20220921
  5. METHOTREXATE SODIUM [Suspect]
     Active Substance: METHOTREXATE SODIUM
     Indication: Rheumatoid arthritis
     Dosage: 1 DOSAGE FORM, QW (1 INJECTION PER WEEK)
     Route: 058
     Dates: end: 20220915
  6. NEO-MERCAZOLE [Suspect]
     Active Substance: CARBIMAZOLE
     Indication: Hyperthyroidism
     Dosage: 10 MILLIGRAM, QD (2 TABLETS PER DAY IN MORNING)
     Route: 048
     Dates: start: 20220611, end: 20220915

REACTIONS (1)
  - Pancytopenia [Fatal]
